FAERS Safety Report 24120653 (Version 1)
Quarter: 2024Q3

REPORT INFORMATION
  Report Type: Spontaneous
  Country: GB (occurrence: GB)
  Receive Date: 20240722
  Receipt Date: 20240722
  Transmission Date: 20241016
  Serious: Yes (Other)
  Sender: B BRAUN
  Company Number: GB-B.Braun Medical Inc.-2159317

PATIENT
  Age: 30 Year
  Sex: Female
  Weight: 59 kg

DRUGS (1)
  1. METRONIDAZOLE [Suspect]
     Active Substance: METRONIDAZOLE
     Indication: Gingivitis
     Dates: start: 20240508, end: 20240512

REACTIONS (5)
  - Brain fog [Not Recovered/Not Resolved]
  - Off label use [Not Recovered/Not Resolved]
  - Disorganised speech [Not Recovered/Not Resolved]
  - Coordination abnormal [Not Recovered/Not Resolved]
  - Confusional state [Not Recovered/Not Resolved]
